FAERS Safety Report 8346587 (Version 3)
Quarter: 2013Q1

REPORT INFORMATION
  Report Type: Report from Study
  Country: BR (occurrence: BR)
  Receive Date: 20120120
  Receipt Date: 20130201
  Transmission Date: 20140127
  Serious: Yes (Hospitalization, Other)
  Sender: FDA-Public Use
  Company Number: BR-ABBOTT-12P-020-0893554-00

PATIENT
  Age: 65 None
  Sex: Male
  Weight: 61 kg

DRUGS (2)
  1. HUMIRA 40 MG/ 0.8 ML PRE-FILLED SYRINGE [Suspect]
     Indication: RHEUMATOID ARTHRITIS
     Dates: start: 20110617
  2. HUMIRA 40 MG/ 0.8 ML PRE-FILLED SYRINGE [Suspect]
     Route: 058

REACTIONS (5)
  - Bullous lung disease [Recovered/Resolved]
  - Pneumothorax [Recovered/Resolved]
  - Mood altered [Unknown]
  - Irritability [Unknown]
  - Insomnia [Unknown]
